FAERS Safety Report 5256386-1 (Version None)
Quarter: 2007Q1

REPORT INFORMATION
  Report Type: 
  Country: None (occurrence: None)
  Receive Date: 20070306
  Receipt Date: 20070222
  Transmission Date: 20070707
  Serious: Yes (Death, Hospitalization)
  Sender: FDA-Public Use
  Company Number: SE-ROCHE-482871

PATIENT
  Age: 40 Year
  Sex: Male

DRUGS (5)
  1. CYMEVENE [Suspect]
     Indication: CYTOMEGALOVIRUS INFECTION
     Dosage: REPORTED FORM: POWDER FOR SOLUTION FOR INFUSION. DOSAGE REGIMEN REPORTED AS 400 MG X 2.
     Route: 042
     Dates: start: 20011203
  2. CYMEVENE [Suspect]
     Dosage: NEW DOSAGE REGIMEN REPORTED AS 250 X 1 REPEATED.
     Route: 042
     Dates: end: 20011212
  3. PRECORTALON [Concomitant]
     Dosage: MEDICATION REPORTED AS PRECORTALON AQUOSUM.
  4. SANDIMMUNE [Concomitant]
  5. AMBISOME [Concomitant]

REACTIONS (3)
  - HYPERBILIRUBINAEMIA [None]
  - MULTI-ORGAN FAILURE [None]
  - RENAL FAILURE [None]
